FAERS Safety Report 9883386 (Version 4)
Quarter: 2014Q2

REPORT INFORMATION
  Report Type: Spontaneous
  Country: BR (occurrence: BR)
  Receive Date: 20140210
  Receipt Date: 20140609
  Transmission Date: 20141212
  Serious: Yes (Hospitalization)
  Sender: FDA-Public Use
  Company Number: BR-BIOGENIDEC-2014BI010789

PATIENT
  Age: 47 Year
  Sex: Female

DRUGS (11)
  1. AVONEX [Suspect]
     Indication: MULTIPLE SCLEROSIS
     Route: 030
     Dates: start: 20080801, end: 20120625
  2. AVONEX [Suspect]
     Indication: MULTIPLE SCLEROSIS
     Route: 030
     Dates: start: 20120702
  3. RIVOTRIL [Concomitant]
     Indication: ANXIETY
  4. RIVOTRIL [Concomitant]
     Indication: SLEEP DISORDER
  5. RIVOTRIL [Concomitant]
     Indication: DEPRESSION
  6. QUETIAPINE [Concomitant]
     Indication: ANXIETY
  7. QUETIAPINE [Concomitant]
     Indication: DEPRESSION
  8. NASONEX [Concomitant]
     Indication: SINUSITIS
  9. PENETRO INALANTE [Concomitant]
     Indication: SINUSITIS
  10. TYLENOL [Concomitant]
     Indication: HEADACHE
  11. FENOFIBRATE [Concomitant]
     Indication: HYPERCHOLESTEROLAEMIA
     Dates: start: 201310

REACTIONS (29)
  - Irritable bowel syndrome [Unknown]
  - Hepatic steatosis [Unknown]
  - Blood creatinine increased [Unknown]
  - Blood triglycerides increased [Unknown]
  - Agitation [Recovered/Resolved]
  - Dystonia [Not Recovered/Not Resolved]
  - Type 2 diabetes mellitus [Not Recovered/Not Resolved]
  - Diabetic neuropathy [Not Recovered/Not Resolved]
  - Neuropathy peripheral [Not Recovered/Not Resolved]
  - Osteopenia [Unknown]
  - Inappropriate schedule of drug administration [Not Recovered/Not Resolved]
  - Peripheral venous disease [Unknown]
  - Spinal disorder [Unknown]
  - Fibromyalgia [Not Recovered/Not Resolved]
  - Abdominal pain [Unknown]
  - Hypotension [Not Recovered/Not Resolved]
  - Abasia [Recovered/Resolved]
  - Nuclear magnetic resonance imaging abnormal [Unknown]
  - Nervousness [Not Recovered/Not Resolved]
  - Hypothyroidism [Not Recovered/Not Resolved]
  - Influenza like illness [Not Recovered/Not Resolved]
  - Fatigue [Not Recovered/Not Resolved]
  - Pyrexia [Recovered/Resolved]
  - Asthenia [Recovered/Resolved]
  - Decreased appetite [Recovered/Resolved]
  - Injection site reaction [Not Recovered/Not Resolved]
  - Depression [Recovered/Resolved]
  - Multiple sclerosis relapse [Recovered/Resolved]
  - Anxiety [Unknown]
